FAERS Safety Report 8232564-4 (Version None)
Quarter: 2012Q1

REPORT INFORMATION
  Report Type: 
  Country: None (occurrence: None)
  Receive Date: 20120321
  Receipt Date: 20120309
  Transmission Date: 20120608
  Serious: Yes (Other)
  Sender: FDA-Public Use
  Company Number: NSR_00510_2012

PATIENT
  Age: 6 Year
  Sex: Female

DRUGS (1)
  1. LAMOTRIGINE [Suspect]
     Indication: PETIT MAL EPILEPSY
     Dosage: (0.5 MG/KG) ; (2 MG/KG) ; (2.5 MG/KG)

REACTIONS (3)
  - CONTUSION [None]
  - RASH MACULO-PAPULAR [None]
  - ACTIVATED PARTIAL THROMBOPLASTIN TIME PROLONGED [None]
